FAERS Safety Report 16578992 (Version 1)
Quarter: 2019Q3

REPORT INFORMATION
  Report Type: Spontaneous
  Country: US (occurrence: US)
  Receive Date: 20190716
  Receipt Date: 20190716
  Transmission Date: 20191004
  Serious: No
  Sender: FDA-Public Use
  Company Number: US-009507513-1907USA008648

PATIENT
  Sex: Male

DRUGS (12)
  1. HYDROXYZINE [Concomitant]
     Active Substance: HYDROXYZINE HYDROCHLORIDE
  2. CLOBETASOL PROPIONATE. [Concomitant]
     Active Substance: CLOBETASOL PROPIONATE
  3. FLUTICASONE PROPIONATE. [Concomitant]
     Active Substance: FLUTICASONE PROPIONATE
  4. VALCHLOR [Suspect]
     Active Substance: MECHLORETHAMINE
     Dosage: UNK UNK, DAILY
  5. LEVOTHYROXINE SODIUM. [Concomitant]
     Active Substance: LEVOTHYROXINE SODIUM
  6. TERBINAFINE. [Concomitant]
     Active Substance: TERBINAFINE
  7. VALCHLOR [Suspect]
     Active Substance: MECHLORETHAMINE
     Dosage: UNK, TWICE A WEEK
  8. INTRON A [Suspect]
     Active Substance: INTERFERON ALFA-2B
     Indication: CUTANEOUS T-CELL LYMPHOMA
     Dosage: 18 MM UNIT/3ML MDV, INJECT 0.5 ML UNDER SKIN, THREE TIMES A WEEK
     Route: 058
  9. TARGRETIN [Concomitant]
     Active Substance: BEXAROTENE
  10. BEXAROTENE. [Concomitant]
     Active Substance: BEXAROTENE
  11. XARELTO [Concomitant]
     Active Substance: RIVAROXABAN
  12. ATORVASTATIN [Concomitant]
     Active Substance: ATORVASTATIN

REACTIONS (3)
  - Product use in unapproved indication [Unknown]
  - Contusion [Unknown]
  - Skin discolouration [Unknown]
